FAERS Safety Report 4474626-3 (Version None)
Quarter: 2004Q4

REPORT INFORMATION
  Report Type: 
  Country: None (occurrence: None)
  Receive Date: 20041008
  Receipt Date: 20040928
  Transmission Date: 20050328
  Serious: Yes (Hospitalization)
  Sender: FDA-Public Use
  Company Number: S04-USA-06455-01

PATIENT
  Age: 85 Year
  Sex: Female

DRUGS (4)
  1. TIAZAC [Suspect]
     Indication: HYPERTENSION
     Dosage: 120 MG QD PO
     Route: 048
  2. LASIX [Concomitant]
  3. SINGULAIR [Concomitant]
  4. ALBUTEROL [Concomitant]

REACTIONS (3)
  - BLOOD PRESSURE DIASTOLIC DECREASED [None]
  - CHEST PAIN [None]
  - DYSPNOEA [None]
